FAERS Safety Report 4929288-5 (Version None)
Quarter: 2006Q1

REPORT INFORMATION
  Report Type: 
  Country: None (occurrence: None)
  Receive Date: 20060223
  Receipt Date: 20060131
  Transmission Date: 20060701
  Serious: Yes (Hospitalization, Other)
  Sender: FDA-Public Use
  Company Number: US200601002932

PATIENT
  Age: 78 Year
  Sex: Female
  Weight: 48.5 kg

DRUGS (18)
  1. FORTEO [Suspect]
     Indication: OSTEOPOROSIS
     Dates: start: 20040702
  2. FORTEO [Concomitant]
  3. ALLEGRA [Concomitant]
  4. CENTRUM SILVER (ASCORBIC ACID, CALCIUM, MINERALS NOS, RETINOL, TOCOPHE [Concomitant]
  5. ACIDOPHILUS (LACTOBACILLUS ACIDOPHILUS) [Concomitant]
  6. ADVAIR DISKUS 100/50 [Concomitant]
  7. ALBUTEROL [Concomitant]
  8. IPRATROPIUM BROMIDE [Concomitant]
  9. KLOR-CON [Concomitant]
  10. TIAZAC [Concomitant]
  11. DEMADEX [Concomitant]
  12. ZANTAC [Concomitant]
  13. LISINOPRIL [Concomitant]
  14. CALCIUM (CALCIUM) [Concomitant]
  15. CORGE (CARVEDILOL) [Concomitant]
  16. ASPIRIN [Concomitant]
  17. XOPENEX (LEVOSALBUTAMOL0 [Concomitant]
  18. SINGULAIR [Concomitant]

REACTIONS (13)
  - BRONCHIECTASIS [None]
  - CARDIAC FAILURE CONGESTIVE [None]
  - CARPAL TUNNEL SYNDROME [None]
  - CHRONIC OBSTRUCTIVE PULMONARY DISEASE [None]
  - KYPHOSIS [None]
  - LUMBAR SPINAL STENOSIS [None]
  - LUNG DISORDER [None]
  - MYOCARDIAL INFARCTION [None]
  - OSTEOARTHRITIS [None]
  - PHARMACEUTICAL PRODUCT COMPLAINT [None]
  - PLEURAL EFFUSION [None]
  - PULMONARY OEDEMA [None]
  - SCAR [None]
